FAERS Safety Report 17498272 (Version 1)
Quarter: 2020Q1

REPORT INFORMATION
  Report Type: Spontaneous
  Country: US (occurrence: US)
  Receive Date: 20200304
  Receipt Date: 20200304
  Transmission Date: 20200409
  Serious: No
  Sender: FDA-Public Use
  Company Number: US-PFIZER INC-2020097531

PATIENT
  Age: 71 Year
  Sex: Female

DRUGS (1)
  1. IBRANCE [Suspect]
     Active Substance: PALBOCICLIB
     Indication: BREAST NEOPLASM
     Dosage: 100 MG, CYCLIC (DAILY FOR 3 WEEKS THEN 1 WEK OFF REPEAT)
     Route: 048
     Dates: start: 201907

REACTIONS (5)
  - Alopecia [Unknown]
  - Fatigue [Unknown]
  - Hair growth abnormal [Unknown]
  - Night sweats [Unknown]
  - Insomnia [Unknown]
